FAERS Safety Report 13239173 (Version 1)
Quarter: 2017Q1

REPORT INFORMATION
  Report Type: Spontaneous
  Country: US (occurrence: US)
  Receive Date: 20170216
  Receipt Date: 20170216
  Transmission Date: 20170428
  Serious: Yes (Other)
  Sender: FDA-Public Use
  Company Number: US-PFIZER INC-2017059743

PATIENT
  Sex: Male

DRUGS (1)
  1. ZIPRASIDONE HCL [Suspect]
     Active Substance: ZIPRASIDONE HYDROCHLORIDE
     Dosage: 120 MG, 1X/DAY

REACTIONS (11)
  - Cellulitis [Unknown]
  - Skin disorder [Unknown]
  - Scrotal abscess [Unknown]
  - Acne [Unknown]
  - Mass [Unknown]
  - Pain [Unknown]
  - Folliculitis [Unknown]
  - Psychotic disorder [Unknown]
  - Furuncle [Unknown]
  - Pruritus [Unknown]
  - Cyst [Unknown]
